FAERS Safety Report 8149760 (Version 5)
Quarter: 2017Q2

REPORT INFORMATION
  Report Type: Spontaneous
  Country: US (occurrence: US)
  Receive Date: 20110922
  Receipt Date: 20170621
  Transmission Date: 20170830
  Serious: Yes (Hospitalization)
  Sender: FDA-Public Use
  Company Number: US-ASTRAZENECA-2011SE42693

PATIENT
  Age: 31017 Day
  Sex: Female
  Weight: 50.8 kg

DRUGS (21)
  1. SEROQUEL XR [Suspect]
     Active Substance: QUETIAPINE FUMARATE
     Indication: ANXIETY
     Route: 048
     Dates: start: 2010
  2. SEROQUEL XR [Suspect]
     Active Substance: QUETIAPINE FUMARATE
     Indication: ANTIDEPRESSANT THERAPY
     Route: 048
     Dates: start: 2010
  3. SEROQUEL XR [Suspect]
     Active Substance: QUETIAPINE FUMARATE
     Indication: DEPRESSION
     Route: 048
  4. SEROQUEL XR [Suspect]
     Active Substance: QUETIAPINE FUMARATE
     Indication: ANTIDEPRESSANT THERAPY
     Dosage: 300 MG TABLET AND SPLITTING A 150 MG TABLET TO EQUAL 75 MG, IN TOTAL SHE TOOK 375 MG 4 HOURS BEFO...
     Route: 048
     Dates: start: 2012, end: 20150727
  5. SEROQUEL XR [Suspect]
     Active Substance: QUETIAPINE FUMARATE
     Indication: SLEEP DISORDER
     Route: 048
     Dates: start: 20150728, end: 20150728
  6. SEROQUEL XR [Suspect]
     Active Substance: QUETIAPINE FUMARATE
     Indication: ANTIDEPRESSANT THERAPY
     Route: 048
     Dates: start: 20150728, end: 20150728
  7. SEROQUEL XR [Suspect]
     Active Substance: QUETIAPINE FUMARATE
     Indication: SLEEP DISORDER
     Route: 048
  8. SEROQUEL XR [Suspect]
     Active Substance: QUETIAPINE FUMARATE
     Indication: MAJOR DEPRESSION
     Route: 048
     Dates: start: 2010
  9. SEROQUEL XR [Suspect]
     Active Substance: QUETIAPINE FUMARATE
     Indication: ANXIETY
     Dosage: 300 MG TABLET AND SPLITTING A 150 MG TABLET TO EQUAL 75 MG, IN TOTAL SHE TOOK 375 MG 4 HOURS BEFO...
     Route: 048
     Dates: start: 2012, end: 20150727
  10. SEROQUEL XR [Suspect]
     Active Substance: QUETIAPINE FUMARATE
     Indication: DEPRESSION
     Route: 048
     Dates: start: 20150728, end: 20150728
  11. SEROQUEL XR [Suspect]
     Active Substance: QUETIAPINE FUMARATE
     Indication: ANXIETY
     Route: 048
  12. SEROQUEL XR [Suspect]
     Active Substance: QUETIAPINE FUMARATE
     Indication: DEPRESSION
     Route: 048
     Dates: start: 2010
  13. SEROQUEL XR [Suspect]
     Active Substance: QUETIAPINE FUMARATE
     Indication: SLEEP DISORDER
     Dosage: 300 MG TABLET AND SPLITTING A 150 MG TABLET TO EQUAL 75 MG, IN TOTAL SHE TOOK 375 MG 4 HOURS BEFO...
     Route: 048
     Dates: start: 2012, end: 20150727
  14. SEROQUEL XR [Suspect]
     Active Substance: QUETIAPINE FUMARATE
     Indication: ANXIETY
     Route: 048
     Dates: start: 20150728, end: 20150728
  15. SEROQUEL XR [Suspect]
     Active Substance: QUETIAPINE FUMARATE
     Indication: MAJOR DEPRESSION
     Route: 048
  16. SEROQUEL XR [Suspect]
     Active Substance: QUETIAPINE FUMARATE
     Indication: MAJOR DEPRESSION
     Dosage: 300 MG TABLET AND SPLITTING A 150 MG TABLET TO EQUAL 75 MG, IN TOTAL SHE TOOK 375 MG 4 HOURS BEFO...
     Route: 048
     Dates: start: 2012, end: 20150727
  17. SEROQUEL XR [Suspect]
     Active Substance: QUETIAPINE FUMARATE
     Indication: ANTIDEPRESSANT THERAPY
     Route: 048
  18. SEROQUEL XR [Suspect]
     Active Substance: QUETIAPINE FUMARATE
     Indication: DEPRESSION
     Dosage: 300 MG TABLET AND SPLITTING A 150 MG TABLET TO EQUAL 75 MG, IN TOTAL SHE TOOK 375 MG 4 HOURS BEFO...
     Route: 048
     Dates: start: 2012, end: 20150727
  19. SEROQUEL XR [Suspect]
     Active Substance: QUETIAPINE FUMARATE
     Indication: MAJOR DEPRESSION
     Route: 048
     Dates: start: 20150728, end: 20150728
  20. SEROQUEL XR [Suspect]
     Active Substance: QUETIAPINE FUMARATE
     Indication: SLEEP DISORDER
     Route: 048
     Dates: start: 2010
  21. LAMICTAL [Concomitant]
     Active Substance: LAMOTRIGINE
     Indication: PROPHYLAXIS
     Dosage: 1 PILL DAILY

REACTIONS (7)
  - Malaise [Unknown]
  - Breast calcifications [Unknown]
  - Urinary incontinence [Unknown]
  - Intentional product misuse [Unknown]
  - Drug dispensing error [Unknown]
  - Visual impairment [Unknown]
  - Vertigo [Unknown]

NARRATIVE: CASE EVENT DATE: 20150729
